FAERS Safety Report 4781620-1 (Version None)
Quarter: 2005Q3

REPORT INFORMATION
  Report Type: 
  Country: None (occurrence: None)
  Receive Date: 20050928
  Receipt Date: 20050920
  Transmission Date: 20060218
  Serious: Yes (Other)
  Sender: FDA-Public Use
  Company Number: US-SANOFI-SYNTHELABO-A03200502972

PATIENT
  Sex: Female
  Weight: 87.5 kg

DRUGS (8)
  1. PLAQUENIL [Suspect]
     Indication: RHEUMATOID ARTHRITIS
     Route: 048
     Dates: start: 20020101, end: 20050910
  2. ASPIRIN [Concomitant]
     Dosage: UNK
     Route: 048
     Dates: start: 19920101
  3. IMURAN [Concomitant]
     Dosage: UNK
     Route: 048
  4. ELAVIL [Concomitant]
     Dosage: UNK
     Route: 048
  5. SYNTHROID [Concomitant]
     Dosage: UNK
     Route: 048
  6. ACTONEL [Concomitant]
     Dosage: UNK
     Route: 048
  7. KLOR-CON [Concomitant]
     Dosage: UNK
     Route: 048
  8. LASIX [Concomitant]

REACTIONS (1)
  - INTERSTITIAL LUNG DISEASE [None]
